FAERS Safety Report 6275030-8 (Version None)
Quarter: 2009Q3

REPORT INFORMATION
  Report Type: 
  Country: None (occurrence: None)
  Receive Date: 20090717
  Receipt Date: 20090708
  Transmission Date: 20100115
  Serious: Yes (Death)
  Sender: FDA-Public Use
  Company Number: 8048877

PATIENT
  Age: 50 Year
  Sex: Male

DRUGS (2)
  1. KEPPRA [Suspect]
     Indication: EPILEPSY
     Dosage: 1000 MG 2/D
     Dates: start: 20090401, end: 20090707
  2. LAMOTRIGINE [Concomitant]

REACTIONS (1)
  - CONVULSION [None]
